FAERS Safety Report 23168140 (Version 3)
Quarter: 2024Q2

REPORT INFORMATION
  Report Type: Spontaneous
  Country: JP (occurrence: JP)
  Receive Date: 20231109
  Receipt Date: 20240405
  Transmission Date: 20240716
  Serious: Yes (Other)
  Sender: FDA-Public Use
  Company Number: JP-ELI_LILLY_AND_COMPANY-JP202311002371

PATIENT
  Age: 71 Year
  Sex: Male
  Weight: 67 kg

DRUGS (4)
  1. GEMCITABINE HYDROCHLORIDE [Suspect]
     Active Substance: GEMCITABINE HYDROCHLORIDE
     Indication: Lung squamous cell carcinoma stage IV
     Dosage: 1800 MG/M2, CYCLICAL
     Route: 041
     Dates: start: 20230329
  2. NECITUMUMAB [Suspect]
     Active Substance: NECITUMUMAB
     Indication: Lung squamous cell carcinoma stage IV
     Dosage: 800 MG/M2, CYCLICAL
     Route: 041
     Dates: start: 20230329, end: 20230623
  3. NECITUMUMAB [Suspect]
     Active Substance: NECITUMUMAB
     Dosage: 400 MG
     Route: 041
     Dates: start: 20230728, end: 20231222
  4. CISPLATIN [Suspect]
     Active Substance: CISPLATIN
     Indication: Lung squamous cell carcinoma stage IV
     Dosage: 130 MG/M2, CYCLICAL
     Route: 041
     Dates: start: 20230329

REACTIONS (2)
  - Dermatitis acneiform [Recovered/Resolved]
  - Platelet count decreased [Recovered/Resolved]

NARRATIVE: CASE EVENT DATE: 20230407
